FAERS Safety Report 14976745 (Version 2)
Quarter: 2018Q3

REPORT INFORMATION
  Report Type: Spontaneous
  Country: US (occurrence: US)
  Receive Date: 20180605
  Receipt Date: 20180810
  Transmission Date: 20181010
  Serious: No
  Sender: FDA-Public Use
  Company Number: US-VIIV HEALTHCARE LIMITED-US2018098332

PATIENT
  Age: 75 Year
  Sex: Male

DRUGS (3)
  1. SELZENTRY [Suspect]
     Active Substance: MARAVIROC
     Indication: HIV INFECTION
     Dosage: UNK UNK, U
  2. INTELENCE [Concomitant]
     Active Substance: ETRAVIRINE
  3. TIVICAY [Concomitant]
     Active Substance: DOLUTEGRAVIR SODIUM

REACTIONS (6)
  - Malaise [Recovered/Resolved]
  - Dizziness [Recovered/Resolved]
  - Underdose [Unknown]
  - Ill-defined disorder [Unknown]
  - Adverse drug reaction [Unknown]
  - Drug resistance [Unknown]

NARRATIVE: CASE EVENT DATE: 20180531
